FAERS Safety Report 8902273 (Version 1)
Quarter: 2012Q4

REPORT INFORMATION
  Report Type: 
  Country: BD (occurrence: BD)
  Receive Date: 20121113
  Receipt Date: 20121113
  Transmission Date: 20130627
  Serious: Yes (Other)
  Sender: FDA-Public Use
  Company Number: PHHY2012BD103761

PATIENT
  Age: 27 Year
  Sex: Female

DRUGS (3)
  1. ACLASTA [Suspect]
     Indication: OSTEOPOROSIS
     Dosage: once yearly
     Route: 042
     Dates: start: 20111129
  2. ACLASTA [Suspect]
     Dosage: once yearly
     Route: 042
  3. CALCIUM D [Concomitant]
     Dosage: daily
     Route: 048

REACTIONS (4)
  - Skin discolouration [Unknown]
  - Melanoderma [Not Recovered/Not Resolved]
  - Rheumatic fever [Unknown]
  - Hypersensitivity [Unknown]
